FAERS Safety Report 25522538 (Version 1)
Quarter: 2025Q3

REPORT INFORMATION
  Report Type: Spontaneous
  Country: EU (occurrence: EU)
  Receive Date: 20250707
  Receipt Date: 20250707
  Transmission Date: 20251020
  Serious: Yes (Hospitalization)
  Sender: ROCHE
  Company Number: None

PATIENT
  Age: 68 Year
  Sex: Female

DRUGS (1)
  1. TOCILIZUMAB [Suspect]
     Active Substance: TOCILIZUMAB
     Indication: Rheumatoid arthritis
     Dosage: WEEKLY SC PREVIOUSLY IV
     Route: 058
     Dates: start: 20110613, end: 20250616

REACTIONS (1)
  - Large cell lung cancer [Unknown]

NARRATIVE: CASE EVENT DATE: 20250219
